FAERS Safety Report 5040552-4 (Version None)
Quarter: 2006Q2

REPORT INFORMATION
  Report Type: 
  Country: None (occurrence: None)
  Receive Date: 20060630
  Receipt Date: 20060622
  Transmission Date: 20061013
  Serious: Yes (Hospitalization)
  Sender: FDA-Public Use
  Company Number: VE-ABBOTT-06P-178-0336836-00

PATIENT
  Age: 80 Year
  Sex: Male
  Weight: 80 kg

DRUGS (5)
  1. KLARICID TABLETS [Suspect]
     Indication: PNEUMONIA
     Route: 048
     Dates: start: 20060508, end: 20060513
  2. CEFTRIAXONE SODIUM [Concomitant]
     Indication: ANTIBIOTIC PROPHYLAXIS
     Route: 030
     Dates: start: 20060510, end: 20060513
  3. ATORVASTATIN CALCIUM [Concomitant]
     Indication: HYPERLIPIDAEMIA
     Route: 048
  4. AMIODARONE HYDROCHLORIDE [Concomitant]
     Indication: ARRHYTHMIA PROPHYLAXIS
     Route: 048
  5. VERAPAMIL HYDROCHLORIDE [Concomitant]
     Indication: VASODILATATION
     Route: 048

REACTIONS (2)
  - ATRIOVENTRICULAR BLOCK COMPLETE [None]
  - CEREBROVASCULAR ACCIDENT [None]
